FAERS Safety Report 24053470 (Version 1)
Quarter: 2024Q3

REPORT INFORMATION
  Report Type: Spontaneous
  Country: DE (occurrence: DE)
  Receive Date: 20240705
  Receipt Date: 20240705
  Transmission Date: 20241016
  Serious: Yes (Other)
  Sender: UCB
  Company Number: DE-UCBSA-2024033001

PATIENT
  Age: 4 Month
  Sex: Female

DRUGS (7)
  1. LEVETIRACETAM [Suspect]
     Active Substance: LEVETIRACETAM
     Indication: Epileptic encephalopathy
     Dosage: UNK
  2. LEVETIRACETAM [Suspect]
     Active Substance: LEVETIRACETAM
     Indication: Off label use
  3. PHENOBARBITAL [Suspect]
     Active Substance: PHENOBARBITAL
     Indication: Epileptic encephalopathy
     Dosage: UNK
  4. CLOBAZAM [Concomitant]
     Active Substance: CLOBAZAM
     Indication: Epileptic encephalopathy
     Dosage: UNK
  5. VALPROIC ACID [Concomitant]
     Active Substance: VALPROIC ACID
     Indication: Epileptic encephalopathy
     Dosage: UNK
  6. TOPIRAMATE [Concomitant]
     Active Substance: TOPIRAMATE
     Indication: Epileptic encephalopathy
     Dosage: UNK
  7. PERAMPANEL [Concomitant]
     Active Substance: PERAMPANEL
     Indication: Epileptic encephalopathy
     Dosage: UNK

REACTIONS (15)
  - Developmental delay [Unknown]
  - Blindness cortical [Unknown]
  - Myoclonic epilepsy [Unknown]
  - Generalised tonic-clonic seizure [Unknown]
  - Neonatal seizure [Unknown]
  - Status epilepticus [Unknown]
  - Partial seizures [Unknown]
  - Scoliosis [Unknown]
  - Joint arthroplasty [Unknown]
  - Speech disorder developmental [Unknown]
  - Gait disturbance [Unknown]
  - Hypotonia [Unknown]
  - Dysstasia [Unknown]
  - Off label use [Unknown]
  - Multiple-drug resistance [Unknown]
